FAERS Safety Report 10430090 (Version 3)
Quarter: 2014Q3

REPORT INFORMATION
  Report Type: Report from Study
  Country: BR (occurrence: BR)
  Receive Date: 20140904
  Receipt Date: 20140908
  Transmission Date: 20150326
  Serious: Yes (Hospitalization)
  Sender: FDA-Public Use
  Company Number: PHHY2014BR109345

PATIENT
  Sex: Male
  Weight: 63 kg

DRUGS (2)
  1. BACLOFEN. [Concomitant]
     Active Substance: BACLOFEN
     Indication: MUSCLE SPASMS
     Dosage: 10 MG, TID
  2. GILENYA [Suspect]
     Active Substance: FINGOLIMOD HYDROCHLORIDE
     Indication: MULTIPLE SCLEROSIS
     Dosage: 1 DF, DAILY

REACTIONS (4)
  - Dysgraphia [Not Recovered/Not Resolved]
  - Progressive multiple sclerosis [Unknown]
  - Paraesthesia [Recovering/Resolving]
  - Coordination abnormal [Not Recovered/Not Resolved]
